FAERS Safety Report 6290561-2 (Version None)
Quarter: 2009Q3

REPORT INFORMATION
  Report Type: 
  Country: None (occurrence: None)
  Receive Date: 20090730
  Receipt Date: 20090722
  Transmission Date: 20100115
  Serious: Yes (Hospitalization)
  Sender: FDA-Public Use
  Company Number: FR-ROCHE-645023

PATIENT
  Sex: Male

DRUGS (9)
  1. CELLCEPT [Suspect]
     Indication: DRUG USE FOR UNKNOWN INDICATION
     Route: 048
  2. NEORAL [Suspect]
     Indication: DRUG USE FOR UNKNOWN INDICATION
     Route: 048
  3. NEORAL [Suspect]
     Route: 048
  4. NEORAL [Suspect]
     Route: 048
  5. CORTANCYL [Suspect]
     Indication: DRUG USE FOR UNKNOWN INDICATION
     Route: 048
  6. CORTANCYL [Suspect]
     Route: 048
  7. TRIFLUCAN [Concomitant]
     Indication: DRUG USE FOR UNKNOWN INDICATION
  8. AMLOR [Concomitant]
     Indication: DRUG USE FOR UNKNOWN INDICATION
  9. PREVISCAN [Concomitant]
     Indication: DRUG USE FOR UNKNOWN INDICATION

REACTIONS (3)
  - FLUID RETENTION [None]
  - RENAL FAILURE ACUTE [None]
  - SODIUM RETENTION [None]
